FAERS Safety Report 18749690 (Version 1)
Quarter: 2021Q1

REPORT INFORMATION
  Report Type: Report from Study
  Country: BR (occurrence: BR)
  Receive Date: 20210117
  Receipt Date: 20210117
  Transmission Date: 20210419
  Serious: Yes (Other)
  Sender: FDA-Public Use
  Company Number: BR-UCBSA-2021001093

PATIENT
  Sex: Female
  Weight: 65 kg

DRUGS (3)
  1. CERTOLIZUMAB PEGOL RA [Suspect]
     Active Substance: CERTOLIZUMAB PEGOL
     Indication: RHEUMATOID ARTHRITIS
     Dosage: 200 MILLIGRAM, EV 15 DAYS
     Route: 058
  2. LEVOTIROXINA [LEVOTHYROXINE] [Concomitant]
     Indication: HYPOTHYROIDISM
     Dosage: UNK
     Route: 048
     Dates: start: 2000
  3. LOSARTANA POTASSICA [Concomitant]
     Active Substance: LOSARTAN
     Indication: HYPERTENSION
     Dosage: 50 MILLIGRAM, ONCE DAILY (QD)
     Route: 048
     Dates: start: 2014

REACTIONS (4)
  - Weight increased [Recovered/Resolved]
  - Hunger [Recovered/Resolved]
  - Hepatic steatosis [Recovering/Resolving]
  - Skin striae [Recovered/Resolved]

NARRATIVE: CASE EVENT DATE: 2020
